FAERS Safety Report 5044458-6 (Version None)
Quarter: 2006Q3

REPORT INFORMATION
  Report Type: 
  Country: None (occurrence: None)
  Receive Date: 20060706
  Receipt Date: 20060703
  Transmission Date: 20061208
  Serious: Yes (Other)
  Sender: FDA-Public Use
  Company Number: 2006UW10196

PATIENT

DRUGS (5)
  1. LITHIUM CARBONATE [Suspect]
     Indication: BIPOLAR I DISORDER
     Route: 048
  2. SEROQUEL [Suspect]
     Indication: BIPOLAR I DISORDER
     Route: 065
     Dates: start: 20050830, end: 20060115
  3. VALPROIC ACID [Concomitant]
     Route: 065
  4. LEVOTHYROXINE SODIUM [Concomitant]
     Indication: HYPOTHYROIDISM
     Route: 065
  5. LORAZEPAM [Concomitant]
     Indication: ANXIETY
     Route: 065

REACTIONS (3)
  - ASTIGMATISM [None]
  - MACULOPATHY [None]
  - RASH MACULAR [None]
